FAERS Safety Report 9270470 (Version 1)
Quarter: 2013Q2

REPORT INFORMATION
  Report Type: Spontaneous
  Country: BR (occurrence: BR)
  Receive Date: 20130503
  Receipt Date: 20130503
  Transmission Date: 20140414
  Serious: Yes (Death)
  Sender: FDA-Public Use
  Company Number: BR-PFIZER INC-2013136093

PATIENT
  Sex: Female

DRUGS (1)
  1. DETRUSITOL LA [Suspect]
     Dosage: UNK

REACTIONS (1)
  - Neoplasm malignant [Fatal]
